FAERS Safety Report 6626765-6 (Version None)
Quarter: 2010Q1

REPORT INFORMATION
  Report Type: 
  Country: None (occurrence: None)
  Receive Date: 20100311
  Receipt Date: 20100304
  Transmission Date: 20100710
  Serious: Yes (Hospitalization, Other)
  Sender: FDA-Public Use
  Company Number: US-BIOGENIDEC-2005BI008092

PATIENT
  Age: 66 Year
  Sex: Female
  Weight: 63 kg

DRUGS (2)
  1. AVONEX [Suspect]
     Indication: MULTIPLE SCLEROSIS
     Route: 030
     Dates: start: 20050414, end: 20050414
  2. AVONEX [Suspect]
     Route: 030
     Dates: start: 20060930, end: 20060930

REACTIONS (3)
  - B-CELL LYMPHOMA [None]
  - HEADACHE [None]
  - PARALYSIS [None]
